FAERS Safety Report 10384389 (Version 3)
Quarter: 2014Q3

REPORT INFORMATION
  Report Type: Spontaneous
  Country: BR (occurrence: BR)
  Receive Date: 20140814
  Receipt Date: 20140910
  Transmission Date: 20150326
  Serious: Yes (Hospitalization)
  Sender: FDA-Public Use
  Company Number: BR-PFIZER INC-2014225038

PATIENT
  Age: 64 Year
  Sex: Male

DRUGS (1)
  1. CELEBRA [Suspect]
     Active Substance: CELECOXIB
     Indication: INJURY
     Dosage: 200 MG, UNK
     Route: 048
     Dates: start: 20140808, end: 20140811

REACTIONS (8)
  - Hallucination [Recovered/Resolved]
  - Confusional state [Recovered/Resolved]
  - Blood pressure increased [Recovered/Resolved]
  - Memory impairment [Not Recovered/Not Resolved]
  - Gastrooesophageal reflux disease [Recovered/Resolved]
  - Insomnia [Recovered/Resolved]
  - Intentional product misuse [Recovered/Resolved]
  - Flushing [Recovered/Resolved]

NARRATIVE: CASE EVENT DATE: 201408
